FAERS Safety Report 5010399-3 (Version None)
Quarter: 2006Q2

REPORT INFORMATION
  Report Type: 
  Country: None (occurrence: None)
  Receive Date: 20060404
  Receipt Date: 20051221
  Transmission Date: 20061013
  Serious: No
  Sender: FDA-Public Use
  Company Number: US200512003767

PATIENT
  Age: 53 Year
  Sex: Female

DRUGS (3)
  1. CYMBALTA [Suspect]
     Indication: DEPRESSION
     Dosage: 30 MG, TABLETS, ORAL
     Route: 048
     Dates: start: 20051118
  2. PROMETRIUM [Concomitant]
  3. CLIMARA [Concomitant]

REACTIONS (1)
  - DYSPNOEA [None]
